FAERS Safety Report 25574156 (Version 1)
Quarter: 2025Q3

REPORT INFORMATION
  Report Type: Spontaneous
  Country: US (occurrence: None)
  Receive Date: 20250717
  Receipt Date: 20250717
  Transmission Date: 20251021
  Serious: Yes (Hospitalization)
  Sender: FDA-CTU
  Company Number: None

PATIENT
  Age: 18 Year
  Sex: Male
  Weight: 72 kg

DRUGS (4)
  1. DOXYCYCLINE HYCLATE [Suspect]
     Active Substance: DOXYCYCLINE HYCLATE
     Indication: Acne
     Dosage: 1 CAPSULE TWICE A DAY ORAL
     Route: 048
     Dates: start: 20231101, end: 20250716
  2. Topical tretinoin cream [Concomitant]
  3. LEXAPRO [Concomitant]
     Active Substance: ESCITALOPRAM OXALATE
  4. topical metronidazole gel [Concomitant]

REACTIONS (2)
  - Depression [None]
  - Suicidal ideation [None]

NARRATIVE: CASE EVENT DATE: 20250711
